FAERS Safety Report 19078099 (Version 1)
Quarter: 2021Q1

REPORT INFORMATION
  Report Type: Spontaneous
  Country: US (occurrence: US)
  Receive Date: 20210331
  Receipt Date: 20210331
  Transmission Date: 20210420
  Serious: Yes (Hospitalization)
  Sender: FDA-Public Use
  Company Number: None

PATIENT
  Age: 57 Year
  Sex: Female
  Weight: 65.6 kg

DRUGS (2)
  1. BEVACIZUMAB (RHUMAB VEGF) [Suspect]
     Active Substance: BEVACIZUMAB
  2. DOXIL [Concomitant]
     Active Substance: DOXORUBICIN HYDROCHLORIDE

REACTIONS (11)
  - Cough [None]
  - Oxygen saturation decreased [None]
  - Chest discomfort [None]
  - Pneumonitis [None]
  - Dyspnoea [None]
  - Lung opacity [None]
  - Fatigue [None]
  - Sputum discoloured [None]
  - Lung consolidation [None]
  - Hypoxia [None]
  - COVID-19 [None]

NARRATIVE: CASE EVENT DATE: 20210326
